FAERS Safety Report 12203326 (Version 2)
Quarter: 2020Q1

REPORT INFORMATION
  Report Type: Spontaneous
  Country: US (occurrence: US)
  Receive Date: 20160323
  Receipt Date: 20200325
  Transmission Date: 20200409
  Serious: Yes (Death, Hospitalization, Other)
  Sender: FDA-Public Use
  Company Number: US-009507513-1603USA009962

PATIENT
  Sex: Female
  Weight: 57.14 kg

DRUGS (2)
  1. JANUVIA [Suspect]
     Active Substance: SITAGLIPTIN PHOSPHATE
     Indication: TYPE 2 DIABETES MELLITUS
     Dosage: 2 TABLETS PER DAY (TWICE DAILY, THEN REDUCED TO ONCE DAILY)
     Dates: start: 20121106, end: 201306
  2. JANUMET [Suspect]
     Active Substance: METFORMIN HYDROCHLORIDE\SITAGLIPTIN PHOSPHATE
     Indication: TYPE 2 DIABETES MELLITUS
     Dosage: ONE TABLET TWICE DAILY
     Route: 048
     Dates: start: 20131106, end: 2013

REACTIONS (27)
  - Pancreatitis [Not Recovered/Not Resolved]
  - Hepatic cancer [Not Recovered/Not Resolved]
  - Hypotension [Recovering/Resolving]
  - Pulseless electrical activity [Recovering/Resolving]
  - Hepatic enzyme abnormal [Unknown]
  - Pancreatic carcinoma metastatic [Fatal]
  - Sepsis [Unknown]
  - Acute respiratory failure [Unknown]
  - Haematemesis [Unknown]
  - Urine analysis abnormal [Unknown]
  - Acute kidney injury [Unknown]
  - Diarrhoea [Unknown]
  - Metabolic acidosis [Unknown]
  - Fatigue [Unknown]
  - Hepatitis acute [Unknown]
  - Varices oesophageal [Unknown]
  - Pruritus [Unknown]
  - Asthenia [Unknown]
  - Bile duct obstruction [Unknown]
  - Small intestinal haemorrhage [Unknown]
  - Septic shock [Not Recovered/Not Resolved]
  - Cholangitis [Unknown]
  - Hyponatraemia [Unknown]
  - Hyperbilirubinaemia [Recovering/Resolving]
  - Urinary retention [Unknown]
  - Gastric haemorrhage [Unknown]
  - Lactic acidosis [Unknown]

NARRATIVE: CASE EVENT DATE: 2014
